FAERS Safety Report 6647648-1 (Version None)
Quarter: 2010Q1

REPORT INFORMATION
  Report Type: 
  Country: None (occurrence: None)
  Receive Date: 20100323
  Receipt Date: 20100323
  Transmission Date: 20100710
  Serious: Yes (Other)
  Sender: FDA-Public Use
  Company Number: None

PATIENT
  Sex: Female
  Weight: 68.2 kg

DRUGS (2)
  1. FOSAMAX [Suspect]
  2. ACTONEL [Suspect]

REACTIONS (3)
  - ANKLE FRACTURE [None]
  - HEART RATE IRREGULAR [None]
  - TOOTH FRACTURE [None]
